FAERS Safety Report 11296638 (Version 1)
Quarter: 2015Q3

REPORT INFORMATION
  Report Type: Spontaneous
  Country: US (occurrence: US)
  Receive Date: 20150722
  Receipt Date: 20150722
  Transmission Date: 20151125
  Serious: Yes (Hospitalization)
  Sender: FDA-Public Use
  Company Number: US-ELI_LILLY_AND_COMPANY-US201005000618

PATIENT
  Age: 57 Year
  Sex: Female
  Weight: 110.66 kg

DRUGS (5)
  1. EFFIENT [Suspect]
     Active Substance: PRASUGREL HYDROCHLORIDE
     Indication: CORONARY ARTERIAL STENT INSERTION
     Dosage: 60 MG, OTHER
     Dates: start: 20091229, end: 20091229
  2. ASPIRIN. [Concomitant]
     Active Substance: ASPIRIN
     Dosage: 325 MG, UNKNOWN
  3. MELOXICAM. [Concomitant]
     Active Substance: MELOXICAM
     Dosage: 15 MG, UNKNOWN
  4. EFFIENT [Suspect]
     Active Substance: PRASUGREL HYDROCHLORIDE
     Dosage: 10 MG, UNKNOWN
     Dates: start: 20091229, end: 20100429
  5. EFFIENT [Suspect]
     Active Substance: PRASUGREL HYDROCHLORIDE
     Dosage: 10 MG, UNKNOWN
     Dates: start: 20100507

REACTIONS (1)
  - Oesophageal ulcer haemorrhage [Recovered/Resolved]

NARRATIVE: CASE EVENT DATE: 20100429
